FAERS Safety Report 4353437-3 (Version None)
Quarter: 2004Q2

REPORT INFORMATION
  Report Type: 
  Country: None (occurrence: None)
  Receive Date: 20040426
  Receipt Date: 20040416
  Transmission Date: 20050107
  Serious: Yes (Other)
  Sender: FDA-Public Use
  Company Number: 200410231BFR

PATIENT
  Age: 8 Year
  Sex: Male

DRUGS (1)
  1. KOGENATE [Suspect]
     Indication: FACTOR VIII DEFICIENCY
     Dosage: BIW, INTRAVENOUS
     Route: 042

REACTIONS (3)
  - DRUG INEFFECTIVE [None]
  - HAEMARTHROSIS [None]
  - MEDICATION ERROR [None]
